FAERS Safety Report 4360839-8 (Version None)
Quarter: 2004Q2

REPORT INFORMATION
  Report Type: 
  Country: None (occurrence: None)
  Receive Date: 20040517
  Receipt Date: 20040510
  Transmission Date: 20050107
  Serious: Yes (Other)
  Sender: FDA-Public Use
  Company Number: HQWYE805611MAY04

PATIENT
  Age: 64 Year
  Sex: Female

DRUGS (11)
  1. INDERAL [Suspect]
     Indication: HYPERTROPHIC CARDIOMYOPATHY
     Dosage: SEE IMAGE
     Route: 048
     Dates: end: 20010926
  2. INDERAL [Suspect]
     Indication: HYPERTROPHIC CARDIOMYOPATHY
     Dosage: SEE IMAGE
     Route: 048
     Dates: start: 20010927
  3. BLOPRESS (CANDESARTAN CILEXETIL, ) [Suspect]
     Dosage: ORAL
     Route: 048
  4. ANPLAG (SARPOGRELATE HYDROCHLORIDE) [Concomitant]
  5. MUCOSTA (REBAMIPIDE) [Concomitant]
  6. JUVELA (TOCOPHEROL) [Concomitant]
  7. WARFARIN SODIUM [Concomitant]
  8. SEREZIN (DIAZEPAM) [Concomitant]
  9. LENDORM [Concomitant]
  10. INDERAL LA [Concomitant]
  11. INDERAL LA [Concomitant]

REACTIONS (7)
  - CARDIO-RESPIRATORY DISTRESS [None]
  - DIFFICULTY IN WALKING [None]
  - DIZZINESS [None]
  - FALL [None]
  - FEELING ABNORMAL [None]
  - LUMBAR VERTEBRAL FRACTURE [None]
  - MOOD ALTERED [None]
